FAERS Safety Report 17363138 (Version 2)
Quarter: 2024Q1

REPORT INFORMATION
  Report Type: Spontaneous
  Country: FI (occurrence: FI)
  Receive Date: 20200203
  Receipt Date: 20240219
  Transmission Date: 20240409
  Serious: Yes (Death)
  Sender: FDA-Public Use
  Company Number: FI-ORION CORPORATION ORION PHARMA-OXYC2020-0001

PATIENT
  Age: 94 Year
  Sex: Male

DRUGS (1)
  1. OXYCODONE HYDROCHLORIDE [Suspect]
     Active Substance: OXYCODONE HYDROCHLORIDE
     Indication: Neck pain
     Dosage: 50 MG OF OXYCODONE TWO TIMES (ON 15 MAY AND 16 MAY 2018)
     Route: 065
     Dates: start: 20180515, end: 20180516

REACTIONS (5)
  - Respiratory disorder [Fatal]
  - Pneumonia aspiration [Fatal]
  - Pneumonia [Fatal]
  - Product selection error [Fatal]
  - Accidental overdose [Fatal]

NARRATIVE: CASE EVENT DATE: 20180501
